FAERS Safety Report 7094687-5 (Version None)
Quarter: 2010Q4

REPORT INFORMATION
  Report Type: 
  Country: None (occurrence: None)
  Receive Date: 20101110
  Receipt Date: 20100611
  Transmission Date: 20110411
  Serious: No
  Sender: FDA-Public Use
  Company Number: US-KINGPHARMUSA00001-K200700215

PATIENT
  Sex: Female
  Weight: 88.889 kg

DRUGS (5)
  1. CYTOMEL [Suspect]
     Indication: HYPOTHYROIDISM
     Dosage: 5 MCG, BID
     Route: 048
     Dates: start: 20060101, end: 20061201
  2. CYTOMEL [Suspect]
     Dosage: 25 MCG, BID
     Route: 048
     Dates: start: 20061201, end: 20070101
  3. CYTOMEL [Suspect]
     Dosage: 25 MCG, QD
     Route: 048
     Dates: start: 20070101, end: 20070201
  4. CYTOMEL [Suspect]
     Dosage: 5 MCG, BID
     Dates: start: 20070201
  5. DYAZIDE [Concomitant]
     Indication: HYPERTENSION
     Dosage: 27/37.5 MG

REACTIONS (24)
  - BLOOD GLUCOSE INCREASED [None]
  - CARDIAC DISORDER [None]
  - CONSTIPATION [None]
  - DRUG DISPENSING ERROR [None]
  - DRUG EFFECT DECREASED [None]
  - DRY SKIN [None]
  - FALL [None]
  - FEELING JITTERY [None]
  - FOOT FRACTURE [None]
  - GASTROINTESTINAL DISORDER [None]
  - GLYCOSYLATED HAEMOGLOBIN INCREASED [None]
  - HEADACHE [None]
  - HEART RATE INCREASED [None]
  - INSOMNIA [None]
  - IRRITABILITY [None]
  - LABORATORY TEST ABNORMAL [None]
  - NERVOUSNESS [None]
  - OSTEOPOROSIS [None]
  - OVERDOSE [None]
  - PALPITATIONS [None]
  - PNEUMONIA [None]
  - PSYCHOMOTOR HYPERACTIVITY [None]
  - VOMITING [None]
  - WEIGHT INCREASED [None]
